FAERS Safety Report 9548420 (Version 9)
Quarter: 2016Q2

REPORT INFORMATION
  Report Type: Spontaneous
  Country: CA (occurrence: CA)
  Receive Date: 20130924
  Receipt Date: 20160401
  Transmission Date: 20160815
  Serious: Yes (Other)
  Sender: FDA-Public Use
  Company Number: CA-ROCHE-1279685

PATIENT
  Age: 61 Year
  Sex: Female
  Weight: 88 kg

DRUGS (8)
  1. SPIRIVA [Concomitant]
     Active Substance: TIOTROPIUM BROMIDE MONOHYDRATE
  2. ALVESCO [Suspect]
     Active Substance: CICLESONIDE
     Route: 055
  3. XOLAIR [Suspect]
     Active Substance: OMALIZUMAB
     Route: 058
     Dates: start: 20150305
  4. ADVAIR HFA [Concomitant]
     Active Substance: FLUTICASONE PROPIONATE\SALMETEROL XINAFOATE
  5. XOLAIR [Suspect]
     Active Substance: OMALIZUMAB
     Indication: ASTHMA
     Route: 058
     Dates: start: 20130527
  6. ALVESCO [Suspect]
     Active Substance: CICLESONIDE
     Indication: PRODUCT USED FOR UNKNOWN INDICATION
     Route: 065
  7. XOLAIR [Suspect]
     Active Substance: OMALIZUMAB
     Route: 058
     Dates: start: 20140403
  8. VENTOLINE [Concomitant]
     Active Substance: ALBUTEROL

REACTIONS (16)
  - Gouty arthritis [Recovered/Resolved]
  - Asthma [Recovering/Resolving]
  - Dizziness [Unknown]
  - Fatigue [Recovering/Resolving]
  - Vitamin D deficiency [Unknown]
  - Respiratory disorder [Unknown]
  - Swelling face [Unknown]
  - Weight increased [Unknown]
  - Nervousness [Recovering/Resolving]
  - Hypocalcaemia [Unknown]
  - Blood pressure systolic increased [Not Recovered/Not Resolved]
  - Hernia [Unknown]
  - Local swelling [Unknown]
  - Vision blurred [Unknown]
  - Drug ineffective [Unknown]
  - Cerebrovascular accident [Recovering/Resolving]

NARRATIVE: CASE EVENT DATE: 201306
